FAERS Safety Report 8012375-5 (Version None)
Quarter: 2011Q4

REPORT INFORMATION
  Report Type: 
  Country: None (occurrence: None)
  Receive Date: 20111228
  Receipt Date: 20111219
  Transmission Date: 20120403
  Serious: Yes (Other)
  Sender: FDA-Public Use
  Company Number: IT-ASTRAZENECA-2011SE76759

PATIENT
  Age: 20482 Day
  Sex: Male

DRUGS (6)
  1. CRESTOR [Suspect]
     Route: 048
     Dates: start: 20101012, end: 20111011
  2. REPAGLINIDE [Concomitant]
  3. OMEPRAZOLE [Concomitant]
  4. RAMIPRIL [Suspect]
     Route: 048
     Dates: start: 20101012, end: 20111011
  5. CADIOAPIRIN [Concomitant]
     Route: 048
  6. ESKIM OMEGA POLYAENUS [Concomitant]

REACTIONS (2)
  - PRURITUS [None]
  - FACE OEDEMA [None]
